FAERS Safety Report 18845134 (Version 1)
Quarter: 2021Q1

REPORT INFORMATION
  Report Type: Report from Study
  Country: US (occurrence: US)
  Receive Date: 20210203
  Receipt Date: 20210203
  Transmission Date: 20210419
  Serious: No
  Sender: FDA-Public Use
  Company Number: US-EXELIXIS-CABO-20029819

PATIENT
  Sex: Male

DRUGS (1)
  1. CABOMETYX [Suspect]
     Active Substance: CABOZANTINIB S-MALATE
     Indication: RENAL CANCER
     Dosage: 40 MG, QD
     Dates: start: 20200417

REACTIONS (5)
  - Defaecation urgency [Unknown]
  - Haemorrhoids [Unknown]
  - Fatigue [Unknown]
  - Diarrhoea [Unknown]
  - Aphthous ulcer [Unknown]
